FAERS Safety Report 10200755 (Version 1)
Quarter: 2014Q2

REPORT INFORMATION
  Report Type: Spontaneous
  Country: US (occurrence: None)
  Receive Date: 20140523
  Receipt Date: 20140523
  Transmission Date: 20141212
  Serious: Yes (Other)
  Sender: FDA-Public Use
  Company Number: None

PATIENT
  Age: 57 Year
  Sex: Female
  Weight: 65.77 kg

DRUGS (1)
  1. CHLORHEXIDINE GLUCONATE [Suspect]
     Indication: GINGIVAL PAIN
     Dosage: 2X DAILY TWICE DAILY TAKEN BY MOUTH
     Route: 048
     Dates: start: 20140424, end: 20140505

REACTIONS (2)
  - Chromaturia [None]
  - Pollakiuria [None]
